FAERS Safety Report 25937125 (Version 2)
Quarter: 2025Q4

REPORT INFORMATION
  Report Type: Spontaneous
  Country: US (occurrence: US)
  Receive Date: 20251017
  Receipt Date: 20251126
  Transmission Date: 20260117
  Serious: Yes (Life-Threatening, Other)
  Sender: PFIZER
  Company Number: US-PFIZER INC-202500204681

PATIENT
  Age: 50 Year
  Sex: Female
  Weight: 72.653 kg

DRUGS (1)
  1. DEPO-PROVERA [Suspect]
     Active Substance: MEDROXYPROGESTERONE ACETATE
     Indication: Contraception
     Dosage: EVERY 3 MONTHS A SHOT IN THE ARM
     Dates: start: 19920219, end: 19940828

REACTIONS (4)
  - Cerebral thrombosis [Not Recovered/Not Resolved]
  - Brain neoplasm [Unknown]
  - Drug ineffective [Unknown]
  - Headache [Unknown]

NARRATIVE: CASE EVENT DATE: 19970418
